FAERS Safety Report 8735920 (Version 4)
Quarter: 2012Q4

REPORT INFORMATION
  Report Type: 
  Country: JP (occurrence: JP)
  Receive Date: 20120822
  Receipt Date: 20120928
  Transmission Date: 20130627
  Serious: Yes (Other)
  Sender: FDA-Public Use
  Company Number: JP-PFIZER INC-2012203735

PATIENT
  Age: 69 Year
  Sex: Male

DRUGS (1)
  1. CELECOX [Suspect]
     Indication: PROCEDURAL PAIN
     Dosage: 200 mg daily
     Route: 048
     Dates: start: 20120809, end: 20120819

REACTIONS (2)
  - Adrenal disorder [Unknown]
  - Rash [Recovering/Resolving]
